FAERS Safety Report 14674143 (Version 2)
Quarter: 2018Q2

REPORT INFORMATION
  Report Type: Other
  Country: CA (occurrence: CA)
  Receive Date: 20180323
  Receipt Date: 20180422
  Transmission Date: 20180711
  Serious: Yes (Hospitalization, Other)
  Sender: FDA-Public Use
  Company Number: CA-APOTEX-2018AP008228

PATIENT
  Age: 86 Year
  Sex: Male

DRUGS (2)
  1. SALBUTAMOL [Suspect]
     Active Substance: ALBUTEROL
     Indication: PRODUCT USED FOR UNKNOWN INDICATION
     Dosage: UNK
     Route: 065
  2. MEPOLIZUMAB [Suspect]
     Active Substance: MEPOLIZUMAB
     Indication: ASTHMA
     Dosage: 100 MG, UNK
     Route: 042

REACTIONS (11)
  - Nephrostomy [Unknown]
  - Nephrostomy tube removal [Unknown]
  - Renal impairment [Unknown]
  - Sinus operation [Unknown]
  - Bladder neoplasm [Unknown]
  - Pollakiuria [Unknown]
  - Polyuria [Unknown]
  - Pelvic mass [Unknown]
  - Post procedural haemorrhage [Unknown]
  - Renal surgery [Unknown]
  - Urinary tract stoma complication [Unknown]
